FAERS Safety Report 13341591 (Version 1)
Quarter: 2017Q1

REPORT INFORMATION
  Report Type: Spontaneous
  Country: US (occurrence: US)
  Receive Date: 20170315
  Receipt Date: 20170315
  Transmission Date: 20170428
  Serious: No
  Sender: FDA-Public Use
  Company Number: None

PATIENT
  Age: 79 Year
  Sex: Female

DRUGS (1)
  1. GLEEVEC [Suspect]
     Active Substance: IMATINIB MESYLATE
     Indication: SECONDARY HYPERTENSION

REACTIONS (4)
  - Rash [None]
  - Alopecia [None]
  - Renal disorder [None]
  - Malaise [None]

NARRATIVE: CASE EVENT DATE: 20170101
